FAERS Safety Report 9839911 (Version 1)
Quarter: 2014Q1

REPORT INFORMATION
  Report Type: Report from Study
  Country: DE (occurrence: DE)
  Receive Date: 20140124
  Receipt Date: 20140124
  Transmission Date: 20141002
  Serious: Yes (Other)
  Sender: FDA-Public Use
  Company Number: DE-ROCHE-1335097

PATIENT
  Sex: 0

DRUGS (1)
  1. RITUXIMAB [Suspect]
     Indication: CHRONIC LYMPHOCYTIC LEUKAEMIA
     Route: 042

REACTIONS (14)
  - Sepsis [Unknown]
  - Bronchopulmonary aspergillosis [Unknown]
  - Hypotension [Unknown]
  - Hypertension [Unknown]
  - Sinusitis [Unknown]
  - Laryngitis [Unknown]
  - Pneumonia [Unknown]
  - Herpes zoster disseminated [Unknown]
  - Cellulitis [Unknown]
  - Dyspnoea [Unknown]
  - Haemoglobin abnormal [Unknown]
  - Blood alkaline phosphatase abnormal [Unknown]
  - Bone pain [Unknown]
  - Influenza like illness [Unknown]
